FAERS Safety Report 8590158-5 (Version None)
Quarter: 2012Q3

REPORT INFORMATION
  Report Type: 
  Country: None (occurrence: None)
  Receive Date: 20120813
  Receipt Date: 20120802
  Transmission Date: 20120928
  Serious: Yes (Hospitalization, Other)
  Sender: FDA-Public Use
  Company Number: US-ASTRAZENECA-2012SE55072

PATIENT
  Sex: Female

DRUGS (6)
  1. MAGNESIUM OXIDE [Concomitant]
  2. SPIRONOLACTONE [Concomitant]
  3. NEXIUM [Suspect]
     Route: 048
     Dates: start: 20110101
  4. POTASSIUM CHLORIDE [Concomitant]
  5. FUROSEMIDE [Concomitant]
  6. NEXIUM [Suspect]
     Indication: GASTROOESOPHAGEAL REFLUX DISEASE
     Route: 048
     Dates: start: 20090101, end: 20110101

REACTIONS (17)
  - ASCITES [None]
  - AMMONIA INCREASED [None]
  - NAUSEA [None]
  - HEPATIC CIRRHOSIS [None]
  - HYPOMAGNESAEMIA [None]
  - CHRONIC OBSTRUCTIVE PULMONARY DISEASE [None]
  - INTENTIONAL DRUG MISUSE [None]
  - DYSPHONIA [None]
  - RENAL FAILURE ACUTE [None]
  - DIARRHOEA [None]
  - COUGH [None]
  - TOXIC NODULAR GOITRE [None]
  - VOMITING [None]
  - ANAEMIA [None]
  - HAEMATOCHEZIA [None]
  - THROMBOCYTOPENIA [None]
  - CHRONIC HEPATIC FAILURE [None]
